FAERS Safety Report 8061027-4 (Version None)
Quarter: 2012Q1

REPORT INFORMATION
  Report Type: 
  Country: None (occurrence: None)
  Receive Date: 20120120
  Receipt Date: 20110427
  Transmission Date: 20120608
  Serious: No
  Sender: FDA-Public Use
  Company Number: US-ALLERGAN-1105809US

PATIENT
  Age: 69 Year
  Sex: Female

DRUGS (2)
  1. GENTEAL [Concomitant]
     Indication: PTOSIS REPAIR
  2. RESTASIS [Suspect]
     Indication: DRY EYE
     Dosage: UNK
     Route: 047

REACTIONS (2)
  - LACRIMATION INCREASED [None]
  - DEVICE EXPULSION [None]
